FAERS Safety Report 12693977 (Version 2)
Quarter: 2016Q3

REPORT INFORMATION
  Report Type: Spontaneous
  Country: US (occurrence: US)
  Receive Date: 20160829
  Receipt Date: 20160909
  Transmission Date: 20161109
  Serious: No
  Sender: FDA-Public Use
  Company Number: US-PFIZER INC-2016400817

PATIENT
  Age: 49 Year
  Sex: Female
  Weight: 91.61 kg

DRUGS (4)
  1. XELJANZ [Suspect]
     Active Substance: TOFACITINIB CITRATE
     Dosage: 5 MG, 1X/DAY
     Route: 048
     Dates: start: 2016, end: 201607
  2. ENBREL [Suspect]
     Active Substance: ETANERCEPT
     Dosage: UNK
  3. HUMIRA [Suspect]
     Active Substance: ADALIMUMAB
     Dosage: UNK
     Route: 058
  4. XELJANZ [Suspect]
     Active Substance: TOFACITINIB CITRATE
     Indication: RHEUMATOID ARTHRITIS
     Dosage: 5 MG, 2X/DAY
     Route: 048
     Dates: start: 201606, end: 2016

REACTIONS (9)
  - Immune system disorder [Unknown]
  - Injection site swelling [Unknown]
  - Tonsillitis [Recovered/Resolved]
  - Hypersensitivity [Recovered/Resolved]
  - Sinusitis [Recovering/Resolving]
  - Inappropriate schedule of drug administration [Unknown]
  - Oral herpes [Recovered/Resolved]
  - Migraine [Recovered/Resolved]
  - Scar [Not Recovered/Not Resolved]

NARRATIVE: CASE EVENT DATE: 2016
